FAERS Safety Report 6365644-9 (Version None)
Quarter: 2009Q3

REPORT INFORMATION
  Report Type: 
  Country: None (occurrence: None)
  Receive Date: 20090919
  Receipt Date: 20090821
  Transmission Date: 20100115
  Serious: Yes (Other)
  Sender: FDA-Public Use
  Company Number: US-ABBOTT-09P-163-0592978-00

PATIENT
  Sex: Female
  Weight: 37.682 kg

DRUGS (1)
  1. HUMIRA [Suspect]
     Indication: CROHN'S DISEASE
     Dosage: EVERY TWO WEEKS
     Dates: start: 20081017

REACTIONS (2)
  - ABDOMINAL DISTENSION [None]
  - SURGERY [None]
